FAERS Safety Report 10575744 (Version 1)
Quarter: 2014Q4

REPORT INFORMATION
  Report Type: Spontaneous
  Country: None (occurrence: None)
  Receive Date: 20141110
  Receipt Date: 20141110
  Transmission Date: 20150529
  Serious: Yes (Other)
  Sender: FDA-Public Use
  Company Number: None

PATIENT
  Age: 49 Year
  Sex: Female
  Weight: 86.18 kg

DRUGS (1)
  1. EVAMIST [Suspect]
     Active Substance: ESTRADIOL
     Indication: HORMONE REPLACEMENT THERAPY
     Dosage: APPLIED TO A SURFACE, USUALLY THE SKIN
     Route: 061

REACTIONS (1)
  - Gynaecomastia [None]

NARRATIVE: CASE EVENT DATE: 20110522
